FAERS Safety Report 11163912 (Version 5)
Quarter: 2015Q3

REPORT INFORMATION
  Report Type: Spontaneous
  Country: US (occurrence: US)
  Receive Date: 20150604
  Receipt Date: 20150807
  Transmission Date: 20151125
  Serious: Yes (Hospitalization, Other)
  Sender: FDA-Public Use
  Company Number: US-PFIZER INC-2015183589

PATIENT
  Age: 73 Year
  Sex: Male
  Weight: 77.55 kg

DRUGS (26)
  1. NORCO [Concomitant]
     Active Substance: ACETAMINOPHEN\HYDROCODONE BITARTRATE
     Dosage: UNK, AS NEEDED (HYDROCODONE BITARTRATE: 5 MG/ PARACETAMOL: 325MG) (1-2 TABS PO Q6H PRN)
     Route: 048
  2. ALBUTEROL SULFATE HFA [Concomitant]
     Indication: WHEEZING
  3. INLYTA [Suspect]
     Active Substance: AXITINIB
     Indication: METASTATIC RENAL CELL CARCINOMA
     Dosage: 5 MG, 2X/DAY
     Route: 048
     Dates: start: 20150506
  4. INLYTA [Suspect]
     Active Substance: AXITINIB
     Dosage: 5 UNK, UNK
     Route: 048
     Dates: start: 20150410, end: 20150506
  5. LEVOTHYROXINE SODIUM. [Concomitant]
     Active Substance: LEVOTHYROXINE SODIUM
     Dosage: 25 ?G, DAILY
     Route: 048
  6. XGEVA [Concomitant]
     Active Substance: DENOSUMAB
     Dosage: UNK (EVERY 6 MONTH)
     Dates: start: 20140522
  7. EPOGEN [Concomitant]
     Active Substance: ERYTHROPOIETIN
     Dosage: UNK
  8. CALCITRIOL. [Concomitant]
     Active Substance: CALCITRIOL
     Dosage: 0.5 ?G, UNK
     Route: 048
  9. ALLOPURINOL. [Concomitant]
     Active Substance: ALLOPURINOL
     Dosage: 100 MG, DAILY
     Route: 048
     Dates: start: 20150617
  10. METOPROLOL SUCCINATE. [Concomitant]
     Active Substance: METOPROLOL SUCCINATE
     Dosage: 25 MG, DAILY
     Route: 048
     Dates: start: 20150617
  11. ZOFRAN [Concomitant]
     Active Substance: ONDANSETRON HYDROCHLORIDE
     Indication: NAUSEA
     Dosage: 8 MG, AS NEEDED (TID)
     Route: 048
  12. ZOFRAN [Concomitant]
     Active Substance: ONDANSETRON HYDROCHLORIDE
     Dosage: UNK, AS NEEDED (DAILY AS NEEDED)
  13. XGEVA [Concomitant]
     Active Substance: DENOSUMAB
     Dosage: UNK (EVERY 6 MONTH )
     Dates: start: 20141210
  14. NORCO [Concomitant]
     Active Substance: ACETAMINOPHEN\HYDROCODONE BITARTRATE
     Indication: PAIN
     Dosage: UNK, 4X/DAY (HYDROCODONE BITARTRATE:5 MG/ PARACETAMOL: 325 MG) Q6H
     Route: 048
  15. LOMOTIL [Concomitant]
     Active Substance: ATROPINE SULFATE\DIPHENOXYLATE HYDROCHLORIDE
     Dosage: UNK, 4X/DAY (ATROPINE SULFATE:2.5 MG/ DIPHENOXYLATE HYDROCHLORIDE: 0.025 MG) Q6H
     Route: 048
  16. RENALL SOFTGEL [Concomitant]
     Dosage: 1 MG, DAILY
     Route: 048
  17. ZOLPIDEM TARTRATE. [Concomitant]
     Active Substance: ZOLPIDEM TARTRATE
     Dosage: 5 MG, DAILY
     Dates: start: 20150617
  18. ZOLPIDEM [Concomitant]
     Active Substance: ZOLPIDEM\ZOLPIDEM TARTRATE
     Dosage: 5 MG, DAILY
     Route: 048
     Dates: start: 20150617
  19. IMODIUM A-D [Concomitant]
     Active Substance: LOPERAMIDE HYDROCHLORIDE
     Dosage: 2 MG, 2X/DAY
     Route: 048
     Dates: start: 20150128
  20. AMLODIPINE BESYLATE. [Concomitant]
     Active Substance: AMLODIPINE BESYLATE
     Dosage: 10 MG, DAILY
     Route: 048
  21. ZOLPIDEM TARTRATE. [Concomitant]
     Active Substance: ZOLPIDEM TARTRATE
     Indication: INSOMNIA
     Dosage: UNK, AS NEEDED (2.5-5 MG PO QHS PRN)
  22. LEVOTHYROXINE. [Concomitant]
     Active Substance: LEVOTHYROXINE
     Dosage: 25 ?G, DAILY
     Route: 048
     Dates: start: 20150326
  23. ALBUTEROL SULFATE HFA [Concomitant]
     Indication: DYSPNOEA
     Dosage: 8.5 G, AS NEEDED (1-2 PUFF INH Q4-6H)
  24. TYLENOL [Concomitant]
     Active Substance: ACETAMINOPHEN
     Indication: HEADACHE
  25. ONDANSETRON [Concomitant]
     Active Substance: ONDANSETRON
     Indication: NAUSEA
     Dosage: 8 MG, 2X/DAY
     Route: 048
     Dates: start: 20150413
  26. LISINOPRIL. [Concomitant]
     Active Substance: LISINOPRIL
     Dosage: 20 MG, UNK
     Route: 048

REACTIONS (21)
  - Subdural haematoma [Recovering/Resolving]
  - Hypertension [Unknown]
  - Atrial fibrillation [Unknown]
  - Hyperkalaemia [Unknown]
  - Retching [Unknown]
  - Vomiting [Recovered/Resolved]
  - Headache [Recovered/Resolved]
  - Thrombocytopenia [Recovering/Resolving]
  - Disease progression [Not Recovered/Not Resolved]
  - Hyponatraemia [Unknown]
  - Fatigue [Recovering/Resolving]
  - Metastatic renal cell carcinoma [Not Recovered/Not Resolved]
  - Dehydration [Unknown]
  - Night sweats [Recovered/Resolved]
  - Diarrhoea [Not Recovered/Not Resolved]
  - Head injury [Recovering/Resolving]
  - Nausea [Recovered/Resolved]
  - Fall [Recovering/Resolving]
  - Amylase increased [Unknown]
  - Lipase increased [Unknown]
  - Confusional state [Recovered/Resolved]

NARRATIVE: CASE EVENT DATE: 20150506
